FAERS Safety Report 22066625 (Version 1)
Quarter: 2023Q1

REPORT INFORMATION
  Report Type: Report from Study
  Country: US (occurrence: US)
  Receive Date: 20230306
  Receipt Date: 20230306
  Transmission Date: 20230418
  Serious: Yes (Hospitalization)
  Sender: FDA-Public Use
  Company Number: US-SEATTLE GENETICS-2023SGN02178

PATIENT
  Sex: Female

DRUGS (1)
  1. TUCATINIB [Suspect]
     Active Substance: TUCATINIB
     Indication: Malignant nipple neoplasm female
     Dosage: UNK
     Route: 065

REACTIONS (6)
  - Tremor [Unknown]
  - Dyspnoea [Unknown]
  - Cortisol abnormal [Unknown]
  - Dry skin [Unknown]
  - Liver function test increased [Unknown]
  - Diarrhoea [Unknown]
